FAERS Safety Report 4325850-1 (Version None)
Quarter: 2004Q1

REPORT INFORMATION
  Report Type: 
  Country: None (occurrence: None)
  Receive Date: 20040323
  Receipt Date: 20040308
  Transmission Date: 20041129
  Serious: Yes (Death)
  Sender: FDA-Public Use
  Company Number: BIVUS040018

PATIENT
  Age: 65 Year
  Sex: Male

DRUGS (4)
  1. ANGIOMAX [Suspect]
     Indication: CORONARY ARTERY SURGERY
     Dosage: 1 MG/KG, BOLUS, IV BOLUS 1.25 MG/KG, HR INF, IV HR INF
     Route: 040
     Dates: start: 20040101, end: 20040101
  2. ANGIOMAX [Suspect]
     Indication: THROMBOSIS PROPHYLAXIS
     Dosage: 1 MG/KG, BOLUS, IV BOLUS 1.25 MG/KG, HR INF, IV HR INF
     Route: 040
     Dates: start: 20040101, end: 20040101
  3. ANGIOMAX [Suspect]
     Indication: CORONARY ARTERY SURGERY
     Dosage: 1 MG/KG, BOLUS, IV BOLUS 1.25 MG/KG, HR INF, IV HR INF
     Route: 040
     Dates: start: 20040101, end: 20040101
  4. ANGIOMAX [Suspect]
     Indication: THROMBOSIS PROPHYLAXIS
     Dosage: 1 MG/KG, BOLUS, IV BOLUS 1.25 MG/KG, HR INF, IV HR INF
     Route: 040
     Dates: start: 20040101, end: 20040101

REACTIONS (1)
  - OPERATIVE HAEMORRHAGE [None]
